FAERS Safety Report 5700624-5 (Version None)
Quarter: 2008Q2

REPORT INFORMATION
  Report Type: 
  Country: None (occurrence: None)
  Receive Date: 20080410
  Receipt Date: 20080401
  Transmission Date: 20081010
  Serious: Yes (Other)
  Sender: FDA-Public Use
  Company Number: US-BAYER-200810055BCC

PATIENT
  Age: 36 Year
  Sex: Female
  Weight: 66 kg

DRUGS (2)
  1. MIDOL [Suspect]
     Indication: MENSTRUAL DISORDER
     Dosage: TOTAL DAILY DOSE: 440 MG  UNIT DOSE: 220 MG
     Route: 048
     Dates: start: 20080101, end: 20080101
  2. EXCEDRIN (MIGRAINE) [Concomitant]

REACTIONS (3)
  - ABASIA [None]
  - DYSARTHRIA [None]
  - SPEECH DISORDER [None]
